FAERS Safety Report 4647841-3 (Version None)
Quarter: 2005Q2

REPORT INFORMATION
  Report Type: 
  Country: None (occurrence: None)
  Receive Date: 20050428
  Receipt Date: 20050302
  Transmission Date: 20051028
  Serious: Yes (Death, Hospitalization)
  Sender: FDA-Public Use
  Company Number: UG-GLAXOSMITHKLINE-B0373506A

PATIENT
  Age: 50 Year
  Sex: Female

DRUGS (5)
  1. COMBIVIR [Suspect]
     Indication: HIV INFECTION
     Dosage: 1TAB TWICE PER DAY
     Route: 048
     Dates: start: 20040830
  2. BLINDED TRIAL MEDICATION [Suspect]
     Indication: HIV INFECTION
     Route: 048
     Dates: start: 20040830
  3. PYRIMETHAMINE [Suspect]
     Dosage: 75MG PER DAY
     Dates: start: 20041011, end: 20041118
  4. SULPHADIAZINE [Concomitant]
     Dosage: 1G FOUR TIMES PER DAY
     Dates: start: 20041011, end: 20041118
  5. FOLINIC ACID [Concomitant]
     Dosage: 15MG ALTERNATE DAYS
     Dates: start: 20041011, end: 20041118

REACTIONS (8)
  - ANAEMIA [None]
  - ASTHENIA [None]
  - LYMPHOCYTE COUNT DECREASED [None]
  - NEUTROPHIL COUNT DECREASED [None]
  - PLATELET COUNT DECREASED [None]
  - PNEUMONIA [None]
  - SWELLING [None]
  - WHITE BLOOD CELL COUNT DECREASED [None]
